FAERS Safety Report 13690669 (Version 1)
Quarter: 2017Q2

REPORT INFORMATION
  Report Type: Spontaneous
  Country: US (occurrence: US)
  Receive Date: 20170626
  Receipt Date: 20170626
  Transmission Date: 20170830
  Serious: Yes (Hospitalization, Other)
  Sender: FDA-Public Use
  Company Number: US-GLAXOSMITHKLINE-US2017097894

PATIENT
  Sex: Male

DRUGS (5)
  1. VYTORIN [Concomitant]
     Active Substance: EZETIMIBE\SIMVASTATIN
  2. FLOVENT [Suspect]
     Active Substance: FLUTICASONE PROPIONATE
     Dosage: 1 PUFF(S), QD
     Route: 055
  3. FLOVENT [Suspect]
     Active Substance: FLUTICASONE PROPIONATE
     Indication: ASTHMA
     Dosage: 2 PUFF(S), QD
     Route: 055
     Dates: start: 2007
  4. PROAIR HFA [Concomitant]
     Active Substance: ALBUTEROL SULFATE
  5. AMLODIPINE + BENAZEPRIL [Concomitant]
     Active Substance: AMLODIPINE BESYLATE\BENAZEPRIL HYDROCHLORIDE

REACTIONS (12)
  - Tooth infection [Recovered/Resolved]
  - Wrong technique in product usage process [Unknown]
  - Colon operation [Unknown]
  - Colon cancer [Unknown]
  - Tooth extraction [Recovered/Resolved]
  - Inappropriate schedule of drug administration [Unknown]
  - Drug dose omission [Unknown]
  - Knee arthroplasty [Unknown]
  - Gingival erythema [Unknown]
  - Prostate cancer [Unknown]
  - Cancer surgery [Unknown]
  - Underdose [Unknown]

NARRATIVE: CASE EVENT DATE: 2007
